FAERS Safety Report 4678476-4 (Version None)
Quarter: 2005Q2

REPORT INFORMATION
  Report Type: 
  Country: None (occurrence: None)
  Receive Date: 20050531
  Receipt Date: 20050531
  Transmission Date: 20051028
  Serious: Yes (Death, Life-Threatening, Hospitalization)
  Sender: FDA-Public Use
  Company Number: None

PATIENT
  Age: 47 Year
  Sex: Male
  Weight: 75.5 kg

DRUGS (10)
  1. FLUDARABINE ATG 2250 MGX2 022105-022205 [Suspect]
     Indication: CHEMOTHERAPY
     Dosage: 65 MG QD IV
     Route: 042
     Dates: start: 20050216, end: 20050220
  2. FLUDARABINE ATG 2250 MGX2 022105-022205 [Suspect]
     Indication: CORD BLOOD TRANSPLANT THERAPY
     Dosage: 65 MG QD IV
     Route: 042
     Dates: start: 20050216, end: 20050220
  3. CYTOXAN [Suspect]
     Indication: TRANSPLANT
     Dosage: 1.87 G QD IV
     Route: 042
     Dates: start: 20050221, end: 20050222
  4. TACROLIMUS [Concomitant]
  5. URSODIOL [Concomitant]
  6. SUCRALFATE [Concomitant]
  7. ACYCLOVIR [Concomitant]
  8. SOLU-MEDROL [Concomitant]
  9. VORICONAZOLE [Concomitant]
  10. PANTROPRAZOLE [Concomitant]

REACTIONS (5)
  - HEPATIC FAILURE [None]
  - HYPOXIA [None]
  - RENAL FAILURE [None]
  - SEPSIS [None]
  - SEPTIC SHOCK [None]
